FAERS Safety Report 24815406 (Version 1)
Quarter: 2025Q1

REPORT INFORMATION
  Report Type: Spontaneous
  Country: US (occurrence: None)
  Receive Date: 20250107
  Receipt Date: 20250107
  Transmission Date: 20250408
  Serious: Yes (Death)
  Sender: FDA-CTU
  Company Number: None

PATIENT
  Age: 86 Year
  Sex: Female
  Weight: 65.7 kg

DRUGS (10)
  1. REVLIMID [Suspect]
     Active Substance: LENALIDOMIDE
     Indication: Myelodysplastic syndrome
     Dosage: FREQUENCY : DAILY;?
     Route: 048
     Dates: start: 20241022, end: 20250107
  2. ALLOPURINOL [Concomitant]
     Active Substance: ALLOPURINOL
  3. AMPHETAMINE/DEXTROAMPHETAMINE 15 MG CP24 [Concomitant]
  4. CALCITRIOL 0.25 MCG CAPS [Concomitant]
  5. CEFDINIR [Concomitant]
     Active Substance: CEFDINIR
  6. FERROUS SULFATE 325 MG TABLET [Concomitant]
  7. FUROSEMIDE 40 MG TABS [Concomitant]
  8. GABAPENTIN 100 MG CAPS [Concomitant]
  9. hydroxyzine HCl 25 mg table [Concomitant]
  10. SIMVASTATIN 10 MG TABS [Concomitant]

REACTIONS (1)
  - Hospice care [None]

NARRATIVE: CASE EVENT DATE: 20250107
